FAERS Safety Report 6988839 (Version 6)
Quarter: 2012Q4

REPORT INFORMATION
  Report Type: 
  Country: DE (occurrence: DE)
  Receive Date: 20090507
  Receipt Date: 20121024
  Transmission Date: 20130627
  Serious: Yes (Death, Life-Threatening)
  Sender: FDA-Public Use
  Company Number: DE-PFIZER INC-2009193078

PATIENT
  Age: 36 Year
  Sex: Female
  Weight: 57 kg

DRUGS (7)
  1. UNACID [Suspect]
     Indication: ENDOCARDITIS PROPHYLAXIS
     Dosage: 3 g, 2x/day
     Route: 042
     Dates: start: 20090303, end: 20090303
  2. AMPICILLIN SODIUM [Suspect]
     Indication: ENDOCARDITIS PROPHYLAXIS
     Dosage: 2 g, 2x/day
     Route: 042
     Dates: start: 20090226, end: 20090226
  3. CLEXANE [Concomitant]
     Route: 058
  4. PERENTEROL [Concomitant]
  5. LOPEDIUM [Concomitant]
  6. ASCORVIT [Concomitant]
  7. PLASTULEN [Concomitant]

REACTIONS (6)
  - Multi-organ failure [Fatal]
  - Pseudomembranous colitis [Fatal]
  - Bacterial sepsis [Fatal]
  - Megacolon [Not Recovered/Not Resolved]
  - Peritonitis bacterial [Not Recovered/Not Resolved]
  - Palpitations [Recovered/Resolved]
